FAERS Safety Report 7351978-8 (Version None)
Quarter: 2011Q1

REPORT INFORMATION
  Report Type: 
  Country: None (occurrence: None)
  Receive Date: 20110315
  Receipt Date: 20110304
  Transmission Date: 20110831
  Serious: Yes (Death, Hospitalization)
  Sender: FDA-Public Use
  Company Number: DE-CELGENEUS-062-21880-11030206

PATIENT
  Age: 71 Year

DRUGS (4)
  1. DACARBAZINE [Suspect]
     Route: 065
     Dates: start: 20110204, end: 20110218
  2. ADRIAMYCIN [Suspect]
     Route: 065
     Dates: start: 20110204, end: 20110218
  3. VINBLASTINE SULFATE [Suspect]
     Route: 065
     Dates: start: 20110204, end: 20110218
  4. REVLIMID [Suspect]
     Route: 048
     Dates: start: 20110204, end: 20110224

REACTIONS (2)
  - DEATH [None]
  - PULMONARY EMBOLISM [None]
